FAERS Safety Report 16221493 (Version 1)
Quarter: 2019Q2

REPORT INFORMATION
  Report Type: Spontaneous
  Country: TR (occurrence: TR)
  Receive Date: 20190422
  Receipt Date: 20190422
  Transmission Date: 20190711
  Serious: Yes (Death, Hospitalization, Other)
  Sender: FDA-Public Use
  Company Number: TR-AMGEN-TURSP2019061203

PATIENT
  Age: 79 Year
  Sex: Male
  Weight: 71 kg

DRUGS (12)
  1. TRENTAL [Concomitant]
     Active Substance: PENTOXIFYLLINE
     Indication: VASCULAR ACCESS COMPLICATION
     Dosage: 600 MILLIGRAM, BID
     Dates: start: 20180320, end: 20190130
  2. VASTAREL [Concomitant]
     Active Substance: TRIMETAZIDINE DIHYDROCHLORIDE
     Indication: VASCULAR ACCESS COMPLICATION
     Dosage: 35 MILLIGRAM, BID
     Dates: start: 20171208, end: 20190130
  3. COMBIVENT [Concomitant]
     Active Substance: ALBUTEROL SULFATE\IPRATROPIUM BROMIDE
     Indication: RESPIRATORY FAILURE
     Dosage: 10 MILLIGRAM
     Dates: start: 20150106, end: 20190130
  4. FORADIL [Concomitant]
     Active Substance: FORMOTEROL FUMARATE
     Indication: RESPIRATORY FAILURE
     Dosage: 12 MICROGRAM, BID
     Dates: start: 20130411, end: 20190130
  5. SPIRIVA [Concomitant]
     Active Substance: TIOTROPIUM BROMIDE MONOHYDRATE
     Indication: RESPIRATORY FAILURE
     Dosage: 18 MICROGRAM, QD
     Dates: start: 20130410, end: 20190130
  6. BETASERC ODIS [Concomitant]
     Indication: VERTIGO
     Dosage: 16 MILLIGRAM, QD
     Dates: start: 20140812, end: 20190130
  7. NOOTROPIL [Concomitant]
     Active Substance: PIRACETAM
     Indication: VERTIGO
     Dosage: 800 MILLIGRAM, QD
     Dates: start: 20130601, end: 20190130
  8. ARANESP [Suspect]
     Active Substance: DARBEPOETIN ALFA
     Dosage: 50 MICROGRAM, QWK
     Route: 058
     Dates: start: 20181106, end: 2019
  9. FLIXOTIDE [Concomitant]
     Active Substance: FLUTICASONE PROPIONATE
     Indication: RESPIRATORY FAILURE
     Dosage: 125 MICROGRAM, BID
     Dates: start: 20150106, end: 20190130
  10. ARANESP [Suspect]
     Active Substance: DARBEPOETIN ALFA
     Indication: ANAEMIA
     Dosage: 60 MICROGRAM
     Route: 058
     Dates: start: 20180609, end: 20181103
  11. PANTPAS [Concomitant]
     Active Substance: PANTOPRAZOLE SODIUM
     Indication: GASTRIC DISORDER
     Dosage: 40 MILLIGRAM, QD
     Dates: start: 20130101, end: 20190130
  12. UROREC [Concomitant]
     Active Substance: SILODOSIN
     Indication: NEOPLASM PROSTATE
     Dosage: 8 MICROGRAM, QD
     Dates: start: 20141016, end: 20190130

REACTIONS (2)
  - Respiratory failure [Fatal]
  - Lung infection [Fatal]

NARRATIVE: CASE EVENT DATE: 20190128
